FAERS Safety Report 21577472 (Version 3)
Quarter: 2023Q1

REPORT INFORMATION
  Report Type: Spontaneous
  Country: US (occurrence: US)
  Receive Date: 20221110
  Receipt Date: 20230104
  Transmission Date: 20230417
  Serious: No
  Sender: FDA-Public Use
  Company Number: US-Calliditas-2022CAL00450

PATIENT
  Sex: Female

DRUGS (2)
  1. TARPEYO [Suspect]
     Active Substance: BUDESONIDE
     Indication: IgA nephropathy
     Dosage: 16 MG (4 MG CAPSULES) DAILY
     Route: 048
     Dates: start: 20221005
  2. PREDNISONE [Concomitant]
     Active Substance: PREDNISONE

REACTIONS (3)
  - Sleep disorder [Recovering/Resolving]
  - Muscle spasms [Recovered/Resolved]
  - Blood cholesterol increased [Unknown]

NARRATIVE: CASE EVENT DATE: 20221010
